FAERS Safety Report 21635430 (Version 1)
Quarter: 2022Q4

REPORT INFORMATION
  Report Type: Spontaneous
  Country: US (occurrence: US)
  Receive Date: 20221123
  Receipt Date: 20221123
  Transmission Date: 20230113
  Serious: Yes (Other)
  Sender: FDA-Public Use
  Company Number: US-NOVOPROD-879095

PATIENT
  Age: 36 Year
  Sex: Male

DRUGS (2)
  1. NOVOLOG [Suspect]
     Active Substance: INSULIN ASPART
     Indication: Product used for unknown indication
     Dosage: 60 UNITS TODAY
     Route: 058
     Dates: start: 20110101
  2. NOVOLOG [Suspect]
     Active Substance: INSULIN ASPART
     Dosage: 25 IU, QD
     Route: 058
     Dates: start: 20211223

REACTIONS (3)
  - Blood glucose increased [Recovered/Resolved]
  - Product quality issue [Not Recovered/Not Resolved]
  - Drug ineffective [Not Recovered/Not Resolved]

NARRATIVE: CASE EVENT DATE: 20211223
